FAERS Safety Report 11236686 (Version 6)
Quarter: 2017Q2

REPORT INFORMATION
  Report Type: Report from Study
  Country: AT (occurrence: AT)
  Receive Date: 20150703
  Receipt Date: 20170427
  Transmission Date: 20170829
  Serious: Yes (Hospitalization, Other)
  Sender: FDA-Public Use
  Company Number: AT-INCYTE CORPORATION-2015IN002242

PATIENT
  Age: 80 Year
  Sex: Male
  Weight: 69.6 kg

DRUGS (21)
  1. JAKAVI [Suspect]
     Active Substance: RUXOLITINIB
     Dosage: 5 MG, BID
     Route: 048
     Dates: start: 20131021, end: 20140323
  2. UROSIN [Concomitant]
     Active Substance: ALLOPURINOL
     Dosage: 100 MG, QD
     Route: 065
  3. ALLOPURINOL. [Concomitant]
     Active Substance: ALLOPURINOL
     Indication: PRODUCT USED FOR UNKNOWN INDICATION
     Dosage: UNK, QD (1-0-0)
     Route: 065
  4. JAKAVI [Suspect]
     Active Substance: RUXOLITINIB
     Dosage: 5 MG, BID
     Route: 048
     Dates: start: 20160803
  5. IMODIUM [Concomitant]
     Active Substance: LOPERAMIDE HYDROCHLORIDE
     Indication: DIARRHOEA
     Dosage: 2 MG, UNK
     Route: 065
     Dates: start: 20141001, end: 20150121
  6. DEFERASIROX [Concomitant]
     Active Substance: DEFERASIROX
     Dosage: UNK UNK, BID (1-0-1)
     Route: 065
  7. BERODUALIN [Concomitant]
     Indication: PRODUCT USED FOR UNKNOWN INDICATION
     Dosage: UNK, PRN
     Route: 065
  8. JAKAVI [Suspect]
     Active Substance: RUXOLITINIB
     Indication: MYELOFIBROSIS
     Dosage: 5 MG, BID
     Route: 048
     Dates: start: 20130708, end: 20130804
  9. JAKAVI [Suspect]
     Active Substance: RUXOLITINIB
     Dosage: 15 MG, QD (5 MG MORNING AND 10 MG EVENING)
     Route: 048
     Dates: start: 20130805, end: 20130825
  10. EXJADE [Concomitant]
     Active Substance: DEFERASIROX
     Indication: IRON OVERLOAD
     Dosage: 500 MG, BID
     Route: 065
     Dates: start: 20130816
  11. UROSIN [Concomitant]
     Active Substance: ALLOPURINOL
     Route: 065
  12. BIOFLORIN                               /AUS/ [Concomitant]
     Indication: DIARRHOEA
     Dosage: UNK
     Route: 065
  13. DEFERASIROX [Concomitant]
     Active Substance: DEFERASIROX
     Indication: PRODUCT USED FOR UNKNOWN INDICATION
     Dosage: UNK UNK, BID (1-0-1)
     Route: 065
  14. UROSIN [Concomitant]
     Active Substance: ALLOPURINOL
     Route: 065
  15. ENTEROBENE [Concomitant]
     Indication: DIARRHOEA
     Dosage: UNK, PRN
     Route: 065
  16. JAKAVI [Suspect]
     Active Substance: RUXOLITINIB
     Dosage: 5 MG, QD
     Route: 048
     Dates: start: 20160119, end: 20160802
  17. UROSIN [Concomitant]
     Active Substance: ALLOPURINOL
     Indication: PRODUCT USED FOR UNKNOWN INDICATION
     Dosage: 100 MG, QD
  18. THROMBO ASS [Concomitant]
     Active Substance: ASPIRIN
     Indication: CARDIOVASCULAR EVENT PROPHYLAXIS
     Dosage: 100 MG, QD
     Route: 065
  19. JAKAVI [Suspect]
     Active Substance: RUXOLITINIB
     Dosage: 10 MG, BID
     Route: 048
     Dates: start: 20130826, end: 20131020
  20. JAKAVI [Suspect]
     Active Substance: RUXOLITINIB
     Dosage: 10 MG, BID
     Route: 048
     Dates: start: 20140324, end: 20160118
  21. ALLOPURINOL. [Concomitant]
     Active Substance: ALLOPURINOL
     Dosage: UNK, QD (1-0-0)
     Route: 065

REACTIONS (18)
  - Anaemia [Recovered/Resolved]
  - Blood calcium decreased [Unknown]
  - Infection [Recovered/Resolved]
  - Dizziness [Recovered/Resolved]
  - Blood glucose increased [Unknown]
  - Hyperkeratosis [Unknown]
  - Chronic obstructive pulmonary disease [Recovered/Resolved]
  - Blood fibrinogen increased [Unknown]
  - Bronchitis [Recovered/Resolved]
  - Staphylococcal infection [Unknown]
  - Thrombocytopenia [Recovered/Resolved]
  - Anaemia [Recovered/Resolved]
  - Bronchitis [Recovered/Resolved]
  - Blood pressure systolic increased [Unknown]
  - Activated partial thromboplastin time prolonged [Unknown]
  - Serum ferritin increased [Unknown]
  - Dysuria [Not Recovered/Not Resolved]
  - Oedema peripheral [Recovered/Resolved]

NARRATIVE: CASE EVENT DATE: 20140512
